FAERS Safety Report 17341803 (Version 1)
Quarter: 2020Q1

REPORT INFORMATION
  Report Type: Spontaneous
  Country: US (occurrence: US)
  Receive Date: 20200129
  Receipt Date: 20200129
  Transmission Date: 20200409
  Serious: No
  Sender: FDA-Public Use
  Company Number: US-ALLERGAN-1917546US

PATIENT

DRUGS (2)
  1. JUVEDERM [Concomitant]
     Active Substance: HYALURONIC ACID
     Indication: DERMAL FILLER INJECTION
     Dosage: UNK, SINGLE
     Route: 023
     Dates: start: 20190419, end: 20190419
  2. BOTOX [Suspect]
     Active Substance: ONABOTULINUMTOXINA
     Indication: PRODUCT USED FOR UNKNOWN INDICATION
     Dosage: 43 UNITS, SINGLE
     Route: 030

REACTIONS (1)
  - Lip infection [Not Recovered/Not Resolved]
